FAERS Safety Report 4575069-4 (Version None)
Quarter: 2005Q1

REPORT INFORMATION
  Report Type: 
  Country: None (occurrence: None)
  Receive Date: 20050208
  Receipt Date: 20041201
  Transmission Date: 20050727
  Serious: Yes (Hospitalization)
  Sender: FDA-Public Use
  Company Number: JP-GLAXOSMITHKLINE-B0359063A

PATIENT
  Age: 68 Year
  Sex: Female
  Weight: 40 kg

DRUGS (6)
  1. PAXIL [Suspect]
     Indication: OBSESSIVE-COMPULSIVE DISORDER
     Route: 048
     Dates: start: 20020129, end: 20040730
  2. RISPERIDONE [Suspect]
     Indication: OBSESSIVE-COMPULSIVE DISORDER
     Route: 048
     Dates: start: 20020129, end: 20030514
  3. FLUVOXAMINE MALEATE [Suspect]
     Indication: OBSESSIVE-COMPULSIVE DISORDER
     Dosage: 25MG THREE TIMES PER DAY
     Route: 048
     Dates: start: 20020417, end: 20040723
  4. PL [Suspect]
     Indication: NASOPHARYNGITIS
     Dosage: 1G THREE TIMES PER DAY
     Route: 048
     Dates: start: 20040720, end: 20040723
  5. CEFZON [Concomitant]
     Indication: NASOPHARYNGITIS
     Dosage: 300MG PER DAY
     Route: 048
     Dates: start: 20040720, end: 20040723
  6. COLD DRUG NAME UNKNOWN [Concomitant]
     Route: 065

REACTIONS (22)
  - ANOREXIA [None]
  - ASPARTATE AMINOTRANSFERASE INCREASED [None]
  - BLOOD CREATINE PHOSPHOKINASE INCREASED [None]
  - BLOOD LACTATE DEHYDROGENASE INCREASED [None]
  - CONVULSION [None]
  - COORDINATION ABNORMAL [None]
  - DEHYDRATION [None]
  - DIZZINESS [None]
  - DRUG INTERACTION [None]
  - DYSSTASIA [None]
  - GENERAL PHYSICAL HEALTH DETERIORATION [None]
  - HIGH DENSITY LIPOPROTEIN DECREASED [None]
  - HYPERHIDROSIS [None]
  - HYPERREFLEXIA [None]
  - MENTAL STATUS CHANGES [None]
  - MYOCLONUS [None]
  - PYREXIA [None]
  - RESTLESSNESS [None]
  - SEROTONIN SYNDROME [None]
  - SOMNOLENCE [None]
  - TREATMENT NONCOMPLIANCE [None]
  - TREMOR [None]
